FAERS Safety Report 16593095 (Version 1)
Quarter: 2019Q3

REPORT INFORMATION
  Report Type: Spontaneous
  Country: CH (occurrence: CH)
  Receive Date: 20190718
  Receipt Date: 20190718
  Transmission Date: 20191004
  Serious: Yes (Disabling)
  Sender: FDA-Public Use
  Company Number: CH-009507513-1907CHE010131

PATIENT
  Age: 53 Year
  Sex: Female
  Weight: 69 kg

DRUGS (9)
  1. CUBICIN [Suspect]
     Active Substance: DAPTOMYCIN
     Indication: DEVICE RELATED INFECTION
  2. IRFEN [Suspect]
     Active Substance: IBUPROFEN
     Dosage: 600 MILLIGRAM, TID
     Dates: start: 201812
  3. PANTOPRAZOLE [Concomitant]
     Active Substance: PANTOPRAZOLE
     Dosage: 20 MILLIGRAM, QD
     Route: 048
  4. XARELTO [Concomitant]
     Active Substance: RIVAROXABAN
     Dosage: 10 MILLIGRAM ONCE DAILY
  5. IRFEN [Suspect]
     Active Substance: IBUPROFEN
     Dosage: 400 MILLIGRAM, TID
     Dates: start: 20181207, end: 20181211
  6. TARGIN [Concomitant]
     Active Substance: NALOXONE HYDROCHLORIDE\OXYCODONE HYDROCHLORIDE
     Dosage: 5 MG/2.5 MG IF NEEDED
  7. DAFALGAN [Concomitant]
     Active Substance: ACETAMINOPHEN
     Dosage: 1 GRAM, QID
     Route: 048
  8. CUBICIN [Suspect]
     Active Substance: DAPTOMYCIN
     Indication: STAPHYLOCOCCAL BACTERAEMIA
     Dosage: 700 MILLIGRAM, QD
     Route: 042
     Dates: start: 20181211, end: 20190105
  9. RIMACTAN [Suspect]
     Active Substance: RIFAMPIN
     Dosage: 900 MILLIGRAM, QD
     Route: 048
     Dates: start: 20181211, end: 20190307

REACTIONS (1)
  - Optic neuritis [Not Recovered/Not Resolved]

NARRATIVE: CASE EVENT DATE: 20181222
